FAERS Safety Report 24544358 (Version 1)
Quarter: 2024Q4

REPORT INFORMATION
  Report Type: Spontaneous
  Country: ZA (occurrence: ZA)
  Receive Date: 20241024
  Receipt Date: 20241024
  Transmission Date: 20250115
  Serious: Yes (Other)
  Sender: PFIZER
  Company Number: ZA-PFIZER INC-PV202400136877

PATIENT
  Age: 31 Year
  Sex: Female

DRUGS (3)
  1. SULFASALAZINE [Suspect]
     Active Substance: SULFASALAZINE
     Indication: Colitis
  2. SULFASALAZINE [Suspect]
     Active Substance: SULFASALAZINE
     Indication: Crohn^s disease
  3. PENTASA [Concomitant]
     Active Substance: MESALAMINE
     Dosage: 1 G, 2X/DAY
     Route: 048
     Dates: start: 20231205

REACTIONS (4)
  - Therapeutic product effect incomplete [Unknown]
  - Gastroenteritis salmonella [Unknown]
  - Norovirus infection [Unknown]
  - Iron deficiency anaemia [Unknown]
